FAERS Safety Report 7463643-7 (Version None)
Quarter: 2011Q2

REPORT INFORMATION
  Report Type: 
  Country: None (occurrence: None)
  Receive Date: 20110506
  Receipt Date: 20110427
  Transmission Date: 20111010
  Serious: Yes (Other)
  Sender: FDA-Public Use
  Company Number: US-US-EMD SERONO, INC.-230524K08USA

PATIENT
  Sex: Male
  Weight: 77 kg

DRUGS (3)
  1. BACLOFEN [Concomitant]
     Indication: MULTIPLE SCLEROSIS
     Route: 048
     Dates: start: 19950101
  2. FLUOXETINE [Concomitant]
     Indication: MULTIPLE SCLEROSIS
     Route: 048
     Dates: start: 19950101
  3. REBIF [Suspect]
     Indication: MULTIPLE SCLEROSIS
     Route: 058
     Dates: start: 20020602

REACTIONS (6)
  - MULTIPLE SCLEROSIS RELAPSE [None]
  - ADRENAL DISORDER [None]
  - ABDOMINAL MASS [None]
  - THYROID CANCER [None]
  - ADRENAL CARCINOMA [None]
  - RENAL CANCER [None]
